FAERS Safety Report 8336327 (Version 2)
Quarter: 2015Q1

REPORT INFORMATION
  Report Type: Report from Study
  Country: US (occurrence: US)
  Receive Date: 20120113
  Receipt Date: 20150226
  Transmission Date: 20150721
  Serious: Yes (Death)
  Sender: FDA-Public Use
  Company Number: US-ROCHE-1029047

PATIENT
  Sex: Male
  Weight: 75.4 kg

DRUGS (26)
  1. AVASTIN [Suspect]
     Active Substance: BEVACIZUMAB
     Route: 030
     Dates: start: 20091111
  2. AVASTIN [Suspect]
     Active Substance: BEVACIZUMAB
     Route: 030
     Dates: start: 20091209
  3. ALIMTA [Concomitant]
     Active Substance: PEMETREXED DISODIUM
     Route: 042
  4. DEXAMETHASONE. [Concomitant]
     Active Substance: DEXAMETHASONE
     Route: 065
  5. EMEND [Concomitant]
     Active Substance: APREPITANT
     Route: 065
  6. TYLENOL [Concomitant]
     Active Substance: ACETAMINOPHEN
     Route: 048
  7. AVASTIN [Suspect]
     Active Substance: BEVACIZUMAB
     Dosage: CYCLE 4, DAY 1
     Route: 030
     Dates: start: 20090803
  8. AVASTIN [Suspect]
     Active Substance: BEVACIZUMAB
     Route: 030
     Dates: start: 20100105
  9. AVASTIN [Suspect]
     Active Substance: BEVACIZUMAB
     Dosage: CYCLE 12, DAY2
     Route: 030
     Dates: start: 20100921
  10. AVASTIN [Suspect]
     Active Substance: BEVACIZUMAB
     Dosage: CYCLE 5, DAY1
     Route: 030
     Dates: start: 20090824
  11. AVASTIN [Suspect]
     Active Substance: BEVACIZUMAB
     Dosage: CYCLE 11, DAY 2
     Route: 030
     Dates: start: 20100402
  12. CISPLATIN. [Concomitant]
     Active Substance: CISPLATIN
     Route: 042
  13. VASOTEC [Concomitant]
     Active Substance: ENALAPRIL MALEATE
     Route: 042
  14. AVASTIN [Suspect]
     Active Substance: BEVACIZUMAB
     Dosage: CYCLE 6, DAY 2
     Route: 030
     Dates: start: 20090923
  15. AVASTIN [Suspect]
     Active Substance: BEVACIZUMAB
     Dosage: CYCLE 13, DAY 2
     Route: 030
     Dates: start: 20101019
  16. FOLIC ACID. [Concomitant]
     Active Substance: FOLIC ACID
     Route: 048
  17. ALOXI [Concomitant]
     Active Substance: PALONOSETRON HYDROCHLORIDE
     Route: 065
  18. AVASTIN [Suspect]
     Active Substance: BEVACIZUMAB
     Indication: MALIGNANT NEOPLASM OF PLEURA
     Route: 030
     Dates: start: 20090603
  19. AVASTIN [Suspect]
     Active Substance: BEVACIZUMAB
     Dosage: CYCLE 2, DAY 1
     Route: 030
     Dates: start: 20090622
  20. AVASTIN [Suspect]
     Active Substance: BEVACIZUMAB
     Dosage: CYCLE 3, DAY 1
     Route: 030
     Dates: start: 20090713
  21. AVASTIN [Suspect]
     Active Substance: BEVACIZUMAB
     Dosage: CYCLE 10, DAY 2
     Route: 030
     Dates: start: 20100308
  22. VANCOMYCIN [Concomitant]
     Active Substance: VANCOMYCIN
     Route: 065
  23. ARANESP [Concomitant]
     Active Substance: DARBEPOETIN ALFA
     Route: 065
  24. PEGFILGRASTIM [Concomitant]
     Active Substance: PEGFILGRASTIM
     Route: 058
  25. VITAMIN B12 [Concomitant]
     Active Substance: CYANOCOBALAMIN
     Route: 065
  26. DECADRON [Concomitant]
     Active Substance: DEXAMETHASONE
     Route: 065

REACTIONS (9)
  - Oedema peripheral [Unknown]
  - Off label use [Unknown]
  - Death [Fatal]
  - Fatigue [Unknown]
  - Nausea [Unknown]
  - Oropharyngeal pain [Unknown]
  - Vomiting [Unknown]
  - Neuropathy peripheral [Unknown]
  - Stomatitis [Unknown]
